FAERS Safety Report 6907803-X (Version None)
Quarter: 2010Q3

REPORT INFORMATION
  Report Type: 
  Country: None (occurrence: None)
  Receive Date: 20100805
  Receipt Date: 20080819
  Transmission Date: 20110219
  Serious: Yes (Hospitalization)
  Sender: FDA-Public Use
  Company Number: US-PFIZER INC-2008069896

PATIENT
  Sex: Female
  Weight: 64.9 kg

DRUGS (7)
  1. DOXORUBICIN HCL [Suspect]
     Dosage: FREQUENCY: 1 IN 3 WEEKS
     Dates: start: 20080527
  2. CYCLOPHOSPHAMIDE [Suspect]
     Dosage: FREQUENCY: 1 IN 3 WEEKS
     Dates: start: 20080527
  3. NEULASTA [Suspect]
     Indication: CHEMOTHERAPY
     Route: 058
     Dates: start: 20080528
  4. DOCETAXEL [Suspect]
     Dosage: FREQUENCY: 1 IN 3 WEEKS
     Dates: start: 20080527
  5. GRANISETRON HYDROCHLORIDE [Concomitant]
  6. PROCHLORPERAZINE EDISYLATE [Concomitant]
  7. DEXAMETHASONE [Concomitant]

REACTIONS (2)
  - FEBRILE NEUTROPENIA [None]
  - NEUTROPENIA [None]
